FAERS Safety Report 15297266 (Version 1)
Quarter: 2018Q3

REPORT INFORMATION
  Report Type: Spontaneous
  Country: US (occurrence: US)
  Receive Date: 20180820
  Receipt Date: 20180820
  Transmission Date: 20181010
  Serious: Yes (Other)
  Sender: FDA-Public Use
  Company Number: US-ALLERGAN-1840465US

PATIENT
  Age: 21 Year
  Sex: Female

DRUGS (3)
  1. URSODEOXYCHOLIC ACID UNK [Suspect]
     Active Substance: URSODIOL
     Dosage: 300 MG, QID
     Route: 048
  2. RIFAMPIN. [Suspect]
     Active Substance: RIFAMPIN
     Indication: CHOLESTASIS OF PREGNANCY
     Dosage: 300 MG, BID
     Route: 048
  3. URSODEOXYCHOLIC ACID UNK [Suspect]
     Active Substance: URSODIOL
     Indication: CHOLESTASIS OF PREGNANCY
     Dosage: 300 MG, TID
     Route: 048

REACTIONS (9)
  - Total bile acids increased [Unknown]
  - Exposure during pregnancy [Unknown]
  - Premature labour [Unknown]
  - Aspartate aminotransferase increased [Recovering/Resolving]
  - Alanine aminotransferase increased [Recovering/Resolving]
  - Drug ineffective for unapproved indication [Unknown]
  - Pruritus generalised [Recovering/Resolving]
  - Off label use [Unknown]
  - Cholestasis of pregnancy [Recovering/Resolving]
